FAERS Safety Report 7337818-1 (Version None)
Quarter: 2011Q1

REPORT INFORMATION
  Report Type: 
  Country: None (occurrence: None)
  Receive Date: 20110303
  Receipt Date: 20110303
  Transmission Date: 20110831
  Serious: Yes (Other)
  Sender: FDA-Public Use
  Company Number: None

PATIENT
  Age: 14 Year
  Sex: Female
  Weight: 48.9885 kg

DRUGS (1)
  1. VIGAMOX [Suspect]
     Indication: EYE INFECTION
     Dosage: ONE DROP THREE TIMES A DAY OPHTHALMIC
     Route: 047
     Dates: start: 20110224, end: 20110228

REACTIONS (3)
  - OCULAR HYPERAEMIA [None]
  - MASS [None]
  - EYE SWELLING [None]
